FAERS Safety Report 18672594 (Version 1)
Quarter: 2020Q4

REPORT INFORMATION
  Report Type: Spontaneous
  Country: SE (occurrence: SE)
  Receive Date: 20201229
  Receipt Date: 20201229
  Transmission Date: 20210114
  Serious: Yes (Hospitalization, Congenital Anomaly)
  Sender: FDA-Public Use
  Company Number: SE-MYLANLABS-2020M1104388

PATIENT
  Sex: Male

DRUGS (1)
  1. SERTRALINE MYLAN [Suspect]
     Active Substance: SERTRALINE HYDROCHLORIDE
     Indication: ANXIETY
     Dosage: 50 MG TABLETS 8101712
     Route: 064
     Dates: start: 20190401

REACTIONS (4)
  - Congenital heart valve disorder [Unknown]
  - Oxygen saturation decreased [Recovered/Resolved]
  - Foetal exposure during pregnancy [Recovered/Resolved]
  - Malnutrition [Recovered/Resolved]

NARRATIVE: CASE EVENT DATE: 202010
